FAERS Safety Report 17580444 (Version 2)
Quarter: 2020Q2

REPORT INFORMATION
  Report Type: Spontaneous
  Country: US (occurrence: US)
  Receive Date: 20200325
  Receipt Date: 20200414
  Transmission Date: 20200713
  Serious: Yes (Hospitalization)
  Sender: FDA-Public Use
  Company Number: US-VERTEX PHARMACEUTICALS-2020-006530

PATIENT
  Age: 21 Year
  Sex: Female
  Weight: 43 kg

DRUGS (5)
  1. BETHKIS [Concomitant]
     Active Substance: TOBRAMYCIN
     Dosage: UNK
  2. PULMOZYME [Concomitant]
     Active Substance: DORNASE ALFA
     Dosage: UNK
  3. COLISTIMETHATE [Concomitant]
     Active Substance: COLISTIMETHATE SODIUM
     Dosage: UNK
  4. NUTREN 2.0 [Concomitant]
     Dosage: UNK
  5. TRIKAFTA [Suspect]
     Active Substance: ELEXACAFTOR\IVACAFTOR\TEZACAFTOR
     Indication: CYSTIC FIBROSIS
     Dosage: FULL DOSE
     Route: 048
     Dates: start: 20191226

REACTIONS (1)
  - Rhinovirus infection [Unknown]

NARRATIVE: CASE EVENT DATE: 20200223
